FAERS Safety Report 8847073 (Version 1)
Quarter: 2012Q4

REPORT INFORMATION
  Report Type: Spontaneous
  Country: US (occurrence: None)
  Receive Date: 20121016
  Receipt Date: 20121016
  Transmission Date: 20130627
  Serious: Yes (Hospitalization)
  Sender: FDA-Public Use
  Company Number: AE-SPE-2012-018

PATIENT
  Age: 76 Year
  Sex: Male

DRUGS (18)
  1. CEFDITOREN [Suspect]
     Route: 048
     Dates: start: 20120815, end: 20120817
  2. CEFDITOREN [Suspect]
  3. LEVOFLOXACIN [Suspect]
     Route: 048
     Dates: start: 20120815, end: 20120817
  4. RIFADIN [Suspect]
     Route: 048
     Dates: start: 20120815, end: 20120817
  5. LANSOPRAZOLO [Concomitant]
  6. LATTULOSO (LACTULOSE) SYRUP [Concomitant]
  7. MIRTAZAPINA (MIRTAZAPINE) TABLET [Concomitant]
  8. GUTRON (MIDODRINE HYDROCHLORIDE) DROP [Concomitant]
  9. INTRAFER / 00023507 / (FERROUS AMINOPROPANE DICARBOXYLATE) DROP [Concomitant]
  10. KCL RETARD ZYMA (POTASSIUM CHLORIDE) SLOW RELEASE TABLE [Concomitant]
  11. SOBREROL (SOBREROL) DROP [Concomitant]
  12. CLOPIXOL / 00876702 / (ZUCLOPENTHIXOL ACETATE) DROP [Concomitant]
  13. DISIPAL (ORPHENADRINE HYDROCHLORIDE) FILM-COATED TABLET [Concomitant]
  14. GASTROGEL / 00066001 / (ALUMINUM HYDROXIDE GEL, MAGNESIUM HYDROXIDE, MAGNESIUM TRISILICATE) [Concomitant]
  15. MADOPAR (BENSERAZIDE HYDROCHLORIDE, LEVODOPA) TABLET [Concomitant]
  16. RIFACOL (RIFAXIMIN) [Concomitant]
  17. VALIUM / 00017001 / (DIAZEPAM) DROP [Concomitant]
  18. DAKTARIN / 00310801 / (MICONAZOLE) ORAL GEL [Concomitant]

REACTIONS (3)
  - Hypotension [None]
  - Melaena [None]
  - Diarrhoea [None]
